FAERS Safety Report 18736401 (Version 1)
Quarter: 2021Q1

REPORT INFORMATION
  Report Type: Report from Study
  Country: US (occurrence: US)
  Receive Date: 20210113
  Receipt Date: 20210113
  Transmission Date: 20210419
  Serious: Yes (Hospitalization, Other)
  Sender: FDA-Public Use
  Company Number: US-GILEAD-2021-0511620

PATIENT
  Age: 50 Year
  Sex: Female

DRUGS (3)
  1. ADEMPAS [Concomitant]
     Active Substance: RIOCIGUAT
  2. UPTRAVI [Concomitant]
     Active Substance: SELEXIPAG
  3. AMBRISENTAN [Suspect]
     Active Substance: AMBRISENTAN
     Indication: PRODUCT USED FOR UNKNOWN INDICATION
     Dosage: 5 MG, QD
     Route: 048
     Dates: start: 20200811

REACTIONS (5)
  - Nausea [Not Recovered/Not Resolved]
  - Hypotension [Unknown]
  - Dizziness [Not Recovered/Not Resolved]
  - Syncope [Unknown]
  - Epistaxis [Unknown]

NARRATIVE: CASE EVENT DATE: 202012
